FAERS Safety Report 20820886 (Version 1)
Quarter: 2022Q2

REPORT INFORMATION
  Report Type: Spontaneous
  Country: US (occurrence: US)
  Receive Date: 20220512
  Receipt Date: 20220512
  Transmission Date: 20220721
  Serious: No
  Sender: FDA-Public Use
  Company Number: US-PFIZER INC-202200452347

PATIENT
  Age: 82 Year
  Sex: Female

DRUGS (13)
  1. XELJANZ XR [Suspect]
     Active Substance: TOFACITINIB CITRATE
     Indication: Rheumatoid arthritis
     Dosage: 11 MG, DAILY
     Route: 048
  2. METFORMIN [Concomitant]
     Active Substance: METFORMIN HYDROCHLORIDE
  3. GLIMEPIRIDE [Concomitant]
     Active Substance: GLIMEPIRIDE
  4. GABAPENTIN [Concomitant]
     Active Substance: GABAPENTIN
  5. ALLOPURINOL [Concomitant]
     Active Substance: ALLOPURINOL
  6. SHINGRIX [Concomitant]
     Active Substance: RECOMBINANT VARICELLA ZOSTER VIRUS (VZV) GLYCOPROTEIN E
  7. OMEPRAZOLE [Concomitant]
     Active Substance: OMEPRAZOLE
  8. VITAMIN D2 [Concomitant]
     Active Substance: ERGOCALCIFEROL
  9. LOSARTAN AND HYDROCHLOROTHIAZIDE [Concomitant]
     Active Substance: HYDROCHLOROTHIAZIDE\LOSARTAN POTASSIUM
  10. LEFLUNOMIDE [Concomitant]
     Active Substance: LEFLUNOMIDE
  11. ROSUVASTATIN [Concomitant]
     Active Substance: ROSUVASTATIN
  12. FUROSEMIDE [Concomitant]
     Active Substance: FUROSEMIDE
  13. FOLIC ACID [Concomitant]
     Active Substance: FOLIC ACID

REACTIONS (1)
  - Drug ineffective [Unknown]
